FAERS Safety Report 7815176-3 (Version None)
Quarter: 2011Q4

REPORT INFORMATION
  Report Type: 
  Country: None (occurrence: None)
  Receive Date: 20111014
  Receipt Date: 20111005
  Transmission Date: 20120403
  Serious: Yes (Hospitalization)
  Sender: FDA-Public Use
  Company Number: JP-JNJFOC-20111004709

PATIENT
  Age: 51 Year
  Sex: Male

DRUGS (6)
  1. TOPIRAMATE [Suspect]
     Indication: EPILEPSY
     Route: 048
  2. DEPAKENE [Suspect]
     Route: 048
  3. DEPAKENE [Suspect]
     Route: 048
  4. DEPAKENE [Suspect]
     Route: 048
  5. TOPIRAMATE [Suspect]
     Route: 048
     Dates: end: 20110901
  6. DEPAKENE [Suspect]
     Indication: EPILEPSY
     Route: 048

REACTIONS (2)
  - SOMNOLENCE [None]
  - DISORIENTATION [None]
